FAERS Safety Report 9355574 (Version 1)
Quarter: 2013Q2

REPORT INFORMATION
  Report Type: Spontaneous
  Country: US (occurrence: None)
  Receive Date: 20130618
  Receipt Date: 20130618
  Transmission Date: 20140414
  Serious: No
  Sender: FDA-Public Use
  Company Number: None

PATIENT
  Age: 79 Year
  Sex: Female
  Weight: 72.58 kg

DRUGS (9)
  1. ABILIFY [Suspect]
     Indication: BIPOLAR DISORDER
     Dosage: 1 DAILY  DAILY  BY MOUTH
     Route: 048
     Dates: start: 20100912, end: 20130124
  2. LISINOPRIL [Concomitant]
  3. KLONOPIN [Concomitant]
  4. REMERON [Concomitant]
  5. MIRAPEX [Concomitant]
  6. PRIAIDONE [Concomitant]
  7. VENLAFAXINE [Concomitant]
  8. VENLAFAXINE HCL ER [Concomitant]
  9. ASPIRIN [Concomitant]

REACTIONS (1)
  - VIIth nerve paralysis [None]
